FAERS Safety Report 10615196 (Version 4)
Quarter: 2015Q1

REPORT INFORMATION
  Report Type: Spontaneous
  Country: US (occurrence: US)
  Receive Date: 20141201
  Receipt Date: 20150218
  Transmission Date: 20150720
  Serious: No
  Sender: FDA-Public Use
  Company Number: US-PFIZER INC-2014322375

PATIENT
  Age: 6 Year
  Sex: Female
  Weight: 23 kg

DRUGS (2)
  1. CHILDRENS ADVIL [Suspect]
     Active Substance: IBUPROFEN
     Indication: PYREXIA
     Dosage: 10 ML Q 6HRS PRN
     Route: 048
     Dates: start: 20141110, end: 20141110
  2. CLARITIN [Suspect]
     Active Substance: LORATADINE
     Dosage: UNK
     Dates: start: 20141110

REACTIONS (6)
  - Product quality issue [Unknown]
  - Product taste abnormal [Recovered/Resolved]
  - Vomiting [Unknown]
  - Drug ineffective [Unknown]
  - Lip swelling [Recovered/Resolved]
  - Hypersensitivity [Unknown]

NARRATIVE: CASE EVENT DATE: 201411
